FAERS Safety Report 22220103 (Version 1)
Quarter: 2023Q2

REPORT INFORMATION
  Report Type: Spontaneous
  Country: US (occurrence: None)
  Receive Date: 20230414
  Receipt Date: 20230414
  Transmission Date: 20230722
  Serious: Yes (Hospitalization)
  Sender: FDA-Public Use
  Company Number: None

PATIENT
  Sex: Male

DRUGS (4)
  1. SOFOSBUVIR\VELPATASVIR [Suspect]
     Active Substance: SOFOSBUVIR\VELPATASVIR
     Dosage: OTHER QUANTITY : 400-100 MG;?FREQUENCY : DAILY;?
     Route: 048
     Dates: start: 20230317
  2. B-1 [Concomitant]
  3. NUBEQA [Concomitant]
     Active Substance: DAROLUTAMIDE
  4. TUMS CHEWY CHW BITES [Concomitant]

REACTIONS (1)
  - Chronic obstructive pulmonary disease [None]
